FAERS Safety Report 23687340 (Version 1)
Quarter: 2024Q1

REPORT INFORMATION
  Report Type: Spontaneous
  Country: SG (occurrence: SG)
  Receive Date: 20240329
  Receipt Date: 20240329
  Transmission Date: 20240409
  Serious: Yes (Death, Other)
  Sender: FDA-Public Use
  Company Number: SG-AstraZeneca-CH-00595693A

PATIENT
  Age: 67 Year
  Sex: Male

DRUGS (1)
  1. SOLIRIS [Suspect]
     Active Substance: ECULIZUMAB
     Indication: Atypical haemolytic uraemic syndrome
     Dosage: 900 MILLIGRAM, EVERY THREE DAYS
     Route: 041
     Dates: start: 20240320, end: 20240321

REACTIONS (1)
  - Death [Fatal]

NARRATIVE: CASE EVENT DATE: 20240321
